FAERS Safety Report 21624576 (Version 2)
Quarter: 2022Q4

REPORT INFORMATION
  Report Type: Spontaneous
  Country: HR (occurrence: HR)
  Receive Date: 20221121
  Receipt Date: 20221129
  Transmission Date: 20230112
  Serious: No
  Sender: FDA-Public Use
  Company Number: HR-GILEAD-2022-0605729

PATIENT
  Age: 41 Year

DRUGS (3)
  1. EPCLUSA [Suspect]
     Active Substance: SOFOSBUVIR\VELPATASVIR
     Indication: Chronic hepatitis C
     Dosage: 1 DOSAGE FORM
     Route: 065
     Dates: start: 20210709, end: 20211001
  2. METHADONE HYDROCHLORIDE [Concomitant]
     Active Substance: METHADONE HYDROCHLORIDE
     Dosage: 10 MG/ML
  3. NORMABEL [Concomitant]
     Active Substance: DIAZEPAM
     Dosage: 10 MG

REACTIONS (1)
  - Drug ineffective [Unknown]
